FAERS Safety Report 24914294 (Version 2)
Quarter: 2025Q1

REPORT INFORMATION
  Report Type: Spontaneous
  Country: US (occurrence: US)
  Receive Date: 20250203
  Receipt Date: 20250210
  Transmission Date: 20250409
  Serious: No
  Sender: ROCHE
  Company Number: US-ROCHE-10000193046

PATIENT
  Sex: Female

DRUGS (8)
  1. ACTEMRA ACTPEN [Suspect]
     Active Substance: TOCILIZUMAB
     Indication: Interstitial lung disease
     Dosage: FORM STRENGTH: 162 MG/0.9 ML
     Route: 058
  2. metocloprami tab 100mg [Concomitant]
  3. myrbetriq TB2 50 mg [Concomitant]
  4. vitamin d tab 25 mcg [Concomitant]
  5. baclofen tab 20 mg [Concomitant]
  6. celebrex CAP 400 mg [Concomitant]
  7. omeprazole CPD 40 MG [Concomitant]
  8. TRAMADOL HCL TAB 50 MG [Concomitant]

REACTIONS (2)
  - Productive cough [Not Recovered/Not Resolved]
  - Off label use [Unknown]
